FAERS Safety Report 26007511 (Version 2)
Quarter: 2025Q4

REPORT INFORMATION
  Report Type: Spontaneous
  Country: US (occurrence: US)
  Receive Date: 20251106
  Receipt Date: 20251113
  Transmission Date: 20260118
  Serious: Yes (Other)
  Sender: BAYER HEALTHCARE PHARMACEUTICALS INC.
  Company Number: US-BAYER-2025A146484

PATIENT
  Age: 50 Year
  Sex: Female

DRUGS (1)
  1. CLIMARA PRO [Suspect]
     Active Substance: ESTRADIOL\LEVONORGESTREL
     Indication: Menopause
     Dosage: 1 DF, OW
     Route: 062
     Dates: start: 202504

REACTIONS (3)
  - Uterine haemorrhage [Recovered/Resolved]
  - Device adhesion issue [None]
  - Drug ineffective [None]

NARRATIVE: CASE EVENT DATE: 20250401
